FAERS Safety Report 8449119-9 (Version None)
Quarter: 2012Q2

REPORT INFORMATION
  Report Type: 
  Country: None (occurrence: None)
  Receive Date: 20120612
  Receipt Date: 20120529
  Transmission Date: 20120825
  Serious: Yes (Other)
  Sender: FDA-Public Use
  Company Number: 2012P1034919

PATIENT
  Age: 50 Year
  Sex: Female

DRUGS (1)
  1. FENTANYL CITRATE [Suspect]
     Indication: PAIN
     Dosage: INH
     Route: 055

REACTIONS (18)
  - INCORRECT ROUTE OF DRUG ADMINISTRATION [None]
  - DYSPNOEA EXERTIONAL [None]
  - LUNG NEOPLASM [None]
  - ALVEOLAR PROTEINOSIS [None]
  - NIGHT SWEATS [None]
  - WEIGHT DECREASED [None]
  - PNEUMONIA [None]
  - INTENTIONAL DRUG MISUSE [None]
  - LYMPHADENOPATHY [None]
  - LEUKOCYTOSIS [None]
  - INFLAMMATION [None]
  - CHEST PAIN [None]
  - MALAISE [None]
  - INTERSTITIAL LUNG DISEASE [None]
  - ANAEMIA [None]
  - PRODUCTIVE COUGH [None]
  - PYREXIA [None]
  - PLEURAL EFFUSION [None]
